FAERS Safety Report 26082933 (Version 2)
Quarter: 2025Q4

REPORT INFORMATION
  Report Type: Spontaneous
  Country: CA (occurrence: CA)
  Receive Date: 20251124
  Receipt Date: 20251127
  Transmission Date: 20260117
  Serious: Yes (Hospitalization, Other)
  Sender: TEVA
  Company Number: CA-TEVA-VS-3395691

PATIENT
  Age: 44 Year
  Sex: Male

DRUGS (6)
  1. RISPERIDONE [Suspect]
     Active Substance: RISPERIDONE
     Indication: Schizophrenia
     Dosage: DOSE FORM: NOT SPECIFIED
     Route: 065
  2. OLANZAPINE [Suspect]
     Active Substance: OLANZAPINE
     Indication: Schizophrenia
     Dosage: DOSE FORM: TABLET (ORALLY DISINTEGRATING)
     Route: 065
  3. TROSPIUM CHLORIDE [Concomitant]
     Active Substance: TROSPIUM CHLORIDE
     Indication: Schizophrenia
     Route: 065
  4. TROSPIUM CHLORIDE [Concomitant]
     Active Substance: TROSPIUM CHLORIDE
     Indication: Schizophrenia
     Route: 065
  5. XANOMELINE [Concomitant]
     Active Substance: XANOMELINE
     Indication: Schizophrenia
     Route: 065
  6. XANOMELINE [Concomitant]
     Active Substance: XANOMELINE
     Indication: Schizophrenia
     Route: 065

REACTIONS (7)
  - Treatment noncompliance [Unknown]
  - Akathisia [Unknown]
  - Symptom recurrence [Unknown]
  - Cognitive disorder [Unknown]
  - Metabolic disorder [Unknown]
  - Blunted affect [Unknown]
  - Weight increased [Unknown]
